FAERS Safety Report 19407429 (Version 1)
Quarter: 2021Q2

REPORT INFORMATION
  Report Type: Spontaneous
  Country: GB (occurrence: GB)
  Receive Date: 20210612
  Receipt Date: 20210612
  Transmission Date: 20210717
  Serious: Yes (Other)
  Sender: FDA-Public Use
  Company Number: GB-TEVA-2021-GB-1922581

PATIENT
  Sex: Male

DRUGS (3)
  1. RASAGILINE. [Suspect]
     Active Substance: RASAGILINE
     Indication: PRODUCT USED FOR UNKNOWN INDICATION
     Route: 065
  2. AMITRIPTYLINE [Suspect]
     Active Substance: AMITRIPTYLINE
     Indication: BACK PAIN
     Dates: start: 20210227, end: 20210319
  3. ORAMORPH (MORPHINE SULFATE) ? BOEHRINGER INGELHEIM [Suspect]
     Active Substance: MORPHINE SULFATE
     Indication: BACK PAIN
     Dates: start: 20210227, end: 20210319

REACTIONS (8)
  - Feeling abnormal [Unknown]
  - Cognitive disorder [Unknown]
  - Condition aggravated [Unknown]
  - Hyperhidrosis [Unknown]
  - Tremor [Unknown]
  - Musculoskeletal stiffness [Unknown]
  - Confusional state [Unknown]
  - Insomnia [Unknown]
